FAERS Safety Report 17549124 (Version 1)
Quarter: 2020Q1

REPORT INFORMATION
  Report Type: Report from Study
  Country: None (occurrence: US)
  Receive Date: 20200317
  Receipt Date: 20200317
  Transmission Date: 20200409
  Serious: Yes (Other)
  Sender: FDA-Public Use
  Company Number: US-ABBVIE-20K-163-3322541-00

PATIENT
  Sex: Male

DRUGS (1)
  1. HUMIRA [Suspect]
     Active Substance: ADALIMUMAB
     Indication: PSORIASIS
     Route: 058

REACTIONS (5)
  - Arthritis [Recovered/Resolved]
  - Pain in extremity [Recovering/Resolving]
  - Fall [Unknown]
  - Eye haemorrhage [Recovered/Resolved]
  - Rib fracture [Recovering/Resolving]
